FAERS Safety Report 4622031-9 (Version None)
Quarter: 2005Q1

REPORT INFORMATION
  Report Type: 
  Country: None (occurrence: None)
  Receive Date: 20050328
  Receipt Date: 20050308
  Transmission Date: 20050727
  Serious: Yes (Hospitalization)
  Sender: FDA-Public Use
  Company Number: ATO-05-0077

PATIENT
  Age: 78 Year
  Sex: Male

DRUGS (3)
  1. TRISENOX [Suspect]
     Indication: ACUTE MYELOID LEUKAEMIA
     Dosage: (0.25 MG/KG, 5 DOSE LOAD:  2X/WK), IVI
     Route: 042
     Dates: start: 20050225, end: 20050305
  2. AMBIEN [Suspect]
  3. CYTARABINE [Suspect]
     Indication: ACUTE MYELOID LEUKAEMIA
     Dosage: 7.5 MG (7.5 MG, 5 DAYS/WK:  2 WK REST), INTRAVENOUS
     Route: 042

REACTIONS (6)
  - APHASIA [None]
  - BLOOD CREATININE ABNORMAL [None]
  - COMA [None]
  - LUNG INFILTRATION [None]
  - PLATELET COUNT DECREASED [None]
  - PYREXIA [None]
